FAERS Safety Report 5246613-9 (Version None)
Quarter: 2007Q1

REPORT INFORMATION
  Report Type: 
  Country: None (occurrence: None)
  Receive Date: 20070222
  Receipt Date: 20070222
  Transmission Date: 20070707
  Serious: Yes (Hospitalization)
  Sender: FDA-Public Use
  Company Number: None

PATIENT
  Sex: Female
  Weight: 42.2 kg

DRUGS (1)
  1. KETOROLAC TROMETHAMINE [Suspect]
     Indication: PAIN

REACTIONS (6)
  - CHEST PAIN [None]
  - DYSPNOEA [None]
  - DYSTONIA [None]
  - MENTAL STATUS CHANGES [None]
  - PAIN [None]
  - TREMOR [None]
